FAERS Safety Report 8796113 (Version 2)
Quarter: 2012Q4

REPORT INFORMATION
  Report Type: 
  Country: US (occurrence: US)
  Receive Date: 20120919
  Receipt Date: 20121019
  Transmission Date: 20130627
  Serious: No
  Sender: FDA-Public Use
  Company Number: US-PFIZER INC-2012226723

PATIENT
  Age: 21 Year
  Sex: Male

DRUGS (1)
  1. ZYVOX [Suspect]
     Indication: SEPSIS
     Dosage: UNK, 2x/day
     Dates: end: 20120912

REACTIONS (5)
  - Nausea [Unknown]
  - Vomiting [Unknown]
  - Diarrhoea [Unknown]
  - Asthenia [Unknown]
  - Movement disorder [Unknown]
